FAERS Safety Report 9699191 (Version 1)
Quarter: 2013Q4

REPORT INFORMATION
  Report Type: Spontaneous
  Country: US (occurrence: US)
  Receive Date: 20131120
  Receipt Date: 20131120
  Transmission Date: 20140711
  Serious: Yes (Other)
  Sender: FDA-Public Use
  Company Number: US-GILEAD-2008-0015090

PATIENT
  Sex: Male

DRUGS (10)
  1. LETAIRIS [Suspect]
     Indication: PULMONARY ARTERIAL HYPERTENSION
     Route: 048
     Dates: start: 20070608, end: 200709
  2. COREG [Concomitant]
     Route: 048
  3. AVAPRO [Concomitant]
     Route: 048
  4. ASA [Concomitant]
     Route: 048
  5. LOVASTATIN [Concomitant]
     Route: 048
  6. SYNTHROID [Concomitant]
     Route: 048
  7. FOSAMAX [Concomitant]
     Route: 048
  8. CITRACAL + D [Concomitant]
     Route: 048
  9. CENTRUM SILVER [Concomitant]
     Route: 048
  10. FISH OIL [Concomitant]
     Route: 048

REACTIONS (2)
  - Dyspnoea [Recovered/Resolved]
  - Joint swelling [Recovered/Resolved]
